FAERS Safety Report 19410433 (Version 1)
Quarter: 2021Q2

REPORT INFORMATION
  Report Type: Spontaneous
  Country: US (occurrence: US)
  Receive Date: 20210612
  Receipt Date: 20210612
  Transmission Date: 20210717
  Serious: Yes (Disabling)
  Sender: FDA-Public Use
  Company Number: None

PATIENT
  Age: 54 Year
  Sex: Female
  Weight: 69.75 kg

DRUGS (1)
  1. AIMOVIG [Suspect]
     Active Substance: ERENUMAB-AOOE

REACTIONS (6)
  - Pain [None]
  - Feeling abnormal [None]
  - Condition aggravated [None]
  - Fatigue [None]
  - Migraine [None]
  - Therapeutic product effect decreased [None]

NARRATIVE: CASE EVENT DATE: 20190315
